FAERS Safety Report 6707902-1 (Version None)
Quarter: 2010Q2

REPORT INFORMATION
  Report Type: 
  Country: None (occurrence: None)
  Receive Date: 20100503
  Receipt Date: 20090316
  Transmission Date: 20101027
  Serious: No
  Sender: FDA-Public Use
  Company Number: US-ASTRAZENECA-2009UW06755

PATIENT
  Age: 51 Year
  Sex: Female
  Weight: 68 kg

DRUGS (6)
  1. NEXIUM [Suspect]
     Indication: DYSPEPSIA
     Route: 048
     Dates: start: 20050101
  2. MULTI-VITAMIN [Concomitant]
  3. ASPIRIN [Concomitant]
  4. BUSPAR [Concomitant]
  5. LORATADINE [Concomitant]
  6. XANAX [Concomitant]

REACTIONS (3)
  - DISCOMFORT [None]
  - GASTRIC PH DECREASED [None]
  - STRESS [None]
